FAERS Safety Report 7206192-3 (Version None)
Quarter: 2011Q1

REPORT INFORMATION
  Report Type: 
  Country: None (occurrence: None)
  Receive Date: 20110103
  Receipt Date: 20101220
  Transmission Date: 20110831
  Serious: Yes (Death)
  Sender: FDA-Public Use
  Company Number: ES-JNJFOC-20101207127

PATIENT
  Age: 50 Year
  Sex: Female

DRUGS (6)
  1. FENTANYL CITRATE [Suspect]
     Indication: INDUCTION AND MAINTENANCE OF ANAESTHESIA
     Route: 042
  2. PROPOFOL [Suspect]
     Indication: INDUCTION AND MAINTENANCE OF ANAESTHESIA
     Route: 042
  3. RISPERDAL [Suspect]
     Indication: SCHIZOPHRENIA
     Route: 048
  4. AKINETON [Suspect]
     Indication: PRODUCT USED FOR UNKNOWN INDICATION
     Route: 048
  5. BESITRAN [Suspect]
     Indication: SCHIZOPHRENIA
     Route: 048
  6. ATROPINE [Suspect]
     Indication: INDUCTION AND MAINTENANCE OF ANAESTHESIA
     Route: 042

REACTIONS (9)
  - VENTRICULAR FIBRILLATION [None]
  - CARDIO-RESPIRATORY ARREST [None]
  - MULTIPLE FRACTURES [None]
  - ELECTROCARDIOGRAM QT PROLONGED [None]
  - HAEMODYNAMIC INSTABILITY [None]
  - FALL [None]
  - DECEREBRATION [None]
  - MULTI-ORGAN FAILURE [None]
  - MYDRIASIS [None]
